FAERS Safety Report 6551620-X (Version None)
Quarter: 2010Q1

REPORT INFORMATION
  Report Type: 
  Country: None (occurrence: None)
  Receive Date: 20100120
  Receipt Date: 20100108
  Transmission Date: 20100710
  Serious: Yes (Other)
  Sender: FDA-Public Use
  Company Number: 230267J10USA

PATIENT
  Age: 32 Year
  Sex: Female
  Weight: 82 kg

DRUGS (8)
  1. REBIF [Suspect]
     Indication: MULTIPLE SCLEROSIS
     Dosage: 44 MCG, 3 IN 1 WEEKS, SUBCUTANEOUS, 44 MCG, 3 IN 1 WEEKS, SUBCUTANEOUS
     Route: 058
     Dates: start: 20090109, end: 20091201
  2. REBIF [Suspect]
     Indication: MULTIPLE SCLEROSIS
     Dosage: 44 MCG, 3 IN 1 WEEKS, SUBCUTANEOUS, 44 MCG, 3 IN 1 WEEKS, SUBCUTANEOUS
     Route: 058
     Dates: start: 20091201
  3. CALCIUM (CALCIUM -S- ANDOZ /00009901/) [Concomitant]
  4. WOMEN ONE A DAY VITAMINS (ONE-A-DAY / 00156401/) [Concomitant]
  5. GABAPENTIN [Concomitant]
  6. NIVIGIL (ALL OTHER THERAPEUTIC PRODUCTS) [Concomitant]
  7. CYMBALTA [Concomitant]
  8. SAVELLA (MILNACIPRAN) [Concomitant]

REACTIONS (1)
  - MENSTRUATION IRREGULAR [None]
